FAERS Safety Report 7579206-9 (Version None)
Quarter: 2011Q2

REPORT INFORMATION
  Report Type: 
  Country: None (occurrence: None)
  Receive Date: 20110628
  Receipt Date: 20110616
  Transmission Date: 20111010
  Serious: Yes (Hospitalization)
  Sender: FDA-Public Use
  Company Number: US-ELI_LILLY_AND_COMPANY-US201105007367

PATIENT
  Sex: Female

DRUGS (4)
  1. SIMVASTATIN [Concomitant]
  2. CYMBALTA [Suspect]
     Indication: DEPRESSION
     Dosage: 90 MG, QD
     Route: 048
     Dates: start: 20041101
  3. BENICAR [Concomitant]
  4. XANAX [Concomitant]
     Dosage: 2 MG, TID

REACTIONS (2)
  - TRANSIENT ISCHAEMIC ATTACK [None]
  - DEPRESSION [None]
